FAERS Safety Report 8479092-9 (Version None)
Quarter: 2012Q2

REPORT INFORMATION
  Report Type: 
  Country: None (occurrence: None)
  Receive Date: 20120629
  Receipt Date: 20120622
  Transmission Date: 20120825
  Serious: Yes (Hospitalization, Other)
  Sender: FDA-Public Use
  Company Number: JP-BRISTOL-MYERS SQUIBB COMPANY-15853336

PATIENT
  Age: 26 Year
  Sex: Female
  Weight: 41 kg

DRUGS (12)
  1. METHOTREXATE [Suspect]
  2. DIFLUCAN [Concomitant]
     Indication: IMMUNOSUPPRESSION
     Route: 048
     Dates: start: 20100227, end: 20100306
  3. SPRYCEL [Suspect]
     Indication: CHRONIC MYELOID LEUKAEMIA
     Dosage: 140MG,2PER1D
     Route: 048
     Dates: start: 20100301
  4. CRAVIT [Concomitant]
     Indication: IMMUNOSUPPRESSION
     Route: 048
     Dates: start: 20100224, end: 20100308
  5. ALLOPURINOL [Concomitant]
     Indication: CHRONIC MYELOID LEUKAEMIA
     Route: 048
     Dates: end: 20100303
  6. PRIMPERAN TAB [Concomitant]
     Indication: NAUSEA
     Route: 042
     Dates: start: 20100301, end: 20100301
  7. ONCOVIN [Suspect]
     Indication: CHRONIC MYELOID LEUKAEMIA
     Route: 042
     Dates: start: 20100226, end: 20100302
  8. LASIX [Concomitant]
     Indication: OEDEMA
     Dosage: 01MAR-01MAR10,10MG 07AUG-23AUG10,20MG(ORAL)
     Route: 042
     Dates: start: 20100301, end: 20100823
  9. CYCLOPHOSPHAMIDE [Suspect]
     Indication: CHRONIC MYELOID LEUKAEMIA
     Route: 042
     Dates: start: 20100226, end: 20100302
  10. DOXORUBICIN HYDROCHLORIDE [Suspect]
     Indication: CHRONIC MYELOID LEUKAEMIA
     Route: 042
     Dates: start: 20100226, end: 20100302
  11. DECADRON [Concomitant]
     Indication: CHRONIC MYELOID LEUKAEMIA
     Route: 042
     Dates: start: 20100226, end: 20100302
  12. NEO-MINOPHAGEN C [Concomitant]
     Indication: LIVER DISORDER
     Route: 042
     Dates: start: 20100222, end: 20100303

REACTIONS (7)
  - PLATELET COUNT DECREASED [None]
  - PLEURISY [None]
  - GASTROINTESTINAL HAEMORRHAGE [None]
  - ANAEMIA [None]
  - NEUTROPHIL COUNT DECREASED [None]
  - ENTEROCOLITIS HAEMORRHAGIC [None]
  - CYTOMEGALOVIRUS ENTEROCOLITIS [None]
